FAERS Safety Report 4983198-6 (Version None)
Quarter: 2006Q2

REPORT INFORMATION
  Report Type: 
  Country: None (occurrence: None)
  Receive Date: 20060426
  Receipt Date: 20060424
  Transmission Date: 20061013
  Serious: Yes (Hospitalization)
  Sender: FDA-Public Use
  Company Number: FR-GLAXOSMITHKLINE-B0421120A

PATIENT
  Age: 82 Year
  Sex: Female

DRUGS (12)
  1. AUGMENTIN '125' [Suspect]
     Dosage: 3000MG PER DAY
     Route: 048
     Dates: end: 20060320
  2. EUPRESSYL [Suspect]
     Dosage: 2TAB PER DAY
     Route: 048
     Dates: end: 20060327
  3. OFLOCET [Suspect]
     Dosage: 2TAB PER DAY
     Route: 048
     Dates: start: 20060311, end: 20060326
  4. PYOSTACINE [Suspect]
     Dosage: 6TAB PER DAY
     Route: 048
     Dates: start: 20060320, end: 20060326
  5. CORDARONE [Suspect]
     Dosage: 1TAB PER DAY
     Route: 048
     Dates: start: 20060314, end: 20060326
  6. COZAAR [Suspect]
     Dosage: 1TAB PER DAY
     Route: 048
     Dates: end: 20060327
  7. FORADIL [Concomitant]
     Route: 065
  8. PULMICORT [Concomitant]
     Route: 065
  9. KARDEGIC [Concomitant]
     Route: 065
  10. SPECIAFOLDINE [Concomitant]
     Route: 065
  11. VIT B12 [Concomitant]
     Route: 065
  12. PREVISCAN [Concomitant]
     Route: 065

REACTIONS (1)
  - TOXIC SKIN ERUPTION [None]
